FAERS Safety Report 6761501-4 (Version None)
Quarter: 2010Q2

REPORT INFORMATION
  Report Type: 
  Country: None (occurrence: None)
  Receive Date: 20100607
  Receipt Date: 20100521
  Transmission Date: 20101027
  Serious: Yes (Hospitalization, Other)
  Sender: FDA-Public Use
  Company Number: ACO_00714_2010

PATIENT
  Sex: Male
  Weight: 94.9 kg

DRUGS (10)
  1. AMPYRA [Suspect]
     Indication: MULTIPLE SCLEROSIS
     Dosage: 10 MG BID ORAL, (10 M G BID ORAL)
     Route: 048
     Dates: end: 20100101
  2. AMPYRA [Suspect]
     Indication: MULTIPLE SCLEROSIS
     Dosage: 10 MG BID ORAL, (10 M G BID ORAL)
     Route: 048
     Dates: start: 20100101
  3. AMPYRA [Suspect]
     Indication: MULTIPLE SCLEROSIS
     Dosage: 10 MG QD ORAL
     Route: 048
  4. SYNTHROID [Concomitant]
  5. METFORMIN [Concomitant]
  6. CHOLECALCIFEROL [Concomitant]
  7. ALLOPURINOL [Concomitant]
  8. CYMBALTA [Concomitant]
  9. COPAXONE [Concomitant]
  10. GABAPENTIN [Concomitant]

REACTIONS (5)
  - ASTHENIA [None]
  - DIZZINESS [None]
  - FOOD POISONING [None]
  - NAUSEA [None]
  - VOMITING [None]
